FAERS Safety Report 20866478 (Version 1)
Quarter: 2022Q2

REPORT INFORMATION
  Report Type: Spontaneous
  Country: US (occurrence: US)
  Receive Date: 20220524
  Receipt Date: 20220524
  Transmission Date: 20220721
  Serious: No
  Sender: FDA-Public Use
  Company Number: US-BAYER-2022A068914

PATIENT
  Age: 29 Year
  Sex: Female

DRUGS (1)
  1. MIRENA [Suspect]
     Active Substance: LEVONORGESTREL
     Indication: Contraception
     Dosage: 20?G/DAY
     Route: 015
     Dates: start: 20220506, end: 20220506

REACTIONS (3)
  - Device difficult to use [Recovered/Resolved]
  - Device use issue [Recovered/Resolved]
  - Device use error [None]

NARRATIVE: CASE EVENT DATE: 20220506
